FAERS Safety Report 4484205-X (Version None)
Quarter: 2004Q3

REPORT INFORMATION
  Report Type: 
  Country: None (occurrence: None)
  Receive Date: 20040921
  Receipt Date: 20040212
  Transmission Date: 20050211
  Serious: Yes (Hospitalization)
  Sender: FDA-Public Use
  Company Number: 163-20785-04020343

PATIENT
  Age: 71 Year
  Sex: Male
  Weight: 73.9 kg

DRUGS (2)
  1. THALOMID [Suspect]
     Indication: GLIOBLASTOMA MULTIFORME
     Dosage: 100 MG, DAILY, ORAL
     Route: 048
     Dates: start: 20040129, end: 20040203
  2. CPT-II (IRINOTECAN) [Suspect]
     Indication: GLIOBLASTOMA MULTIFORME
     Dosage: 350 MG/M2, EVERY THREE WEEKS, INTRAVENOUS
     Route: 042
     Dates: start: 20040129

REACTIONS (4)
  - DEHYDRATION [None]
  - DIARRHOEA [None]
  - LEUKOPENIA [None]
  - PYREXIA [None]
